FAERS Safety Report 5298488-X (Version None)
Quarter: 2007Q2

REPORT INFORMATION
  Report Type: 
  Country: None (occurrence: None)
  Receive Date: 20070409
  Receipt Date: 20070330
  Transmission Date: 20071010
  Serious: Yes (Hospitalization)
  Sender: FDA-Public Use
  Company Number: 2007PV032757

PATIENT
  Age: 54 Year
  Sex: Female

DRUGS (2)
  1. BYETTA [Suspect]
     Indication: DIABETES MELLITUS
     Dosage: 5 MCG;SC
     Route: 058
     Dates: start: 20070301, end: 20070301
  2. GLUCOPHAGE [Concomitant]

REACTIONS (2)
  - HYPERSENSITIVITY [None]
  - RENAL FAILURE [None]
